FAERS Safety Report 13785363 (Version 1)
Quarter: 2017Q3

REPORT INFORMATION
  Report Type: Spontaneous
  Country: US (occurrence: US)
  Receive Date: 20170724
  Receipt Date: 20170724
  Transmission Date: 20171127
  Serious: No
  Sender: FDA-Public Use
  Company Number: None

PATIENT
  Age: 42 Year
  Sex: Female

DRUGS (1)
  1. GLEEVEC [Suspect]
     Active Substance: IMATINIB MESYLATE
     Indication: CHRONIC MYELOID LEUKAEMIA
     Dosage: ?          OTHER DOSE:MG;?
     Route: 048
     Dates: start: 20170314, end: 20170721

REACTIONS (3)
  - Fatigue [None]
  - Chest pain [None]
  - Palpitations [None]

NARRATIVE: CASE EVENT DATE: 20170720
